FAERS Safety Report 18460398 (Version 1)
Quarter: 2020Q4

REPORT INFORMATION
  Report Type: Spontaneous
  Country: NP (occurrence: NP)
  Receive Date: 20201103
  Receipt Date: 20201103
  Transmission Date: 20210114
  Serious: Yes (Other)
  Sender: FDA-Public Use
  Company Number: NP-LUPIN PHARMACEUTICALS INC.-2020-06077

PATIENT
  Age: 44 Year
  Sex: Male

DRUGS (2)
  1. METHYLPREDNISOLONE. [Suspect]
     Active Substance: METHYLPREDNISOLONE
     Indication: RETINAL VASCULITIS
     Dosage: REMAINED FUTILE EVEN AFTER THREE DAYS OF THERAPY
     Route: 042
  2. METHYLPREDNISOLONE. [Suspect]
     Active Substance: METHYLPREDNISOLONE
     Indication: EYE INFARCTION

REACTIONS (1)
  - Drug ineffective [Unknown]
